FAERS Safety Report 5865166-5 (Version None)
Quarter: 2008Q3

REPORT INFORMATION
  Report Type: 
  Country: None (occurrence: None)
  Receive Date: 20080829
  Receipt Date: 20080821
  Transmission Date: 20090109
  Serious: Yes (Death)
  Sender: FDA-Public Use
  Company Number: A0745080A

PATIENT
  Age: 87 Year
  Sex: Male
  Weight: 63.6 kg

DRUGS (10)
  1. AVANDIA [Suspect]
     Dosage: 8MG PER DAY
     Route: 048
     Dates: start: 20060204, end: 20071201
  2. FUROSEMIDE [Concomitant]
     Dates: start: 20061022, end: 20070101
  3. SEROQUEL [Concomitant]
     Dates: start: 20050101, end: 20080101
  4. ARICEPT [Concomitant]
  5. NAMENDA [Concomitant]
  6. PLAVIX [Concomitant]
  7. RANITIDINE [Concomitant]
  8. SEROQUEL [Concomitant]
  9. SYNTHROID [Concomitant]
  10. PROTECT PLUS (MULTIVITAMINS) [Concomitant]

REACTIONS (1)
  - MYOCARDIAL INFARCTION [None]
